FAERS Safety Report 8340286-4 (Version None)
Quarter: 2012Q2

REPORT INFORMATION
  Report Type: 
  Country: None (occurrence: None)
  Receive Date: 20120507
  Receipt Date: 20120430
  Transmission Date: 20120825
  Serious: No
  Sender: FDA-Public Use
  Company Number: US-B.I. PHARMACEUTICALS,INC./RIDGEFIELD-2012-BP-09769BP

PATIENT
  Sex: Female

DRUGS (7)
  1. PRADAXA [Suspect]
     Indication: ATRIAL FIBRILLATION
     Dosage: 300 MG
     Route: 048
     Dates: start: 20120101
  2. VITAMIN D [Concomitant]
     Indication: SUPPLEMENTATION THERAPY
  3. VITAMIN E [Concomitant]
     Indication: SUPPLEMENTATION THERAPY
  4. MULTI-VITAMIN [Concomitant]
     Indication: SUPPLEMENTATION THERAPY
  5. CALCIUM [Concomitant]
     Indication: SUPPLEMENTATION THERAPY
  6. DIGOXIN [Concomitant]
     Indication: ATRIAL FIBRILLATION
     Dosage: 125 MG
     Route: 048
  7. VITAMIN-MINERAL COMPOUND TAB [Concomitant]
     Indication: SUPPLEMENTATION THERAPY

REACTIONS (2)
  - DIARRHOEA [None]
  - CIRCUMORAL OEDEMA [None]
